FAERS Safety Report 25726787 (Version 1)
Quarter: 2025Q3

REPORT INFORMATION
  Report Type: Spontaneous
  Country: US (occurrence: None)
  Receive Date: 20250825
  Receipt Date: 20250825
  Transmission Date: 20251020
  Serious: Yes (Life-Threatening, Disabling, Other)
  Sender: FDA-CTU
  Company Number: None

PATIENT
  Age: 29 Year
  Sex: Male
  Weight: 54 kg

DRUGS (1)
  1. HERBALS\MITRAGYNINE [Suspect]
     Active Substance: HERBALS\MITRAGYNINE
     Indication: Alcohol problem
     Dates: start: 20240101, end: 20250820

REACTIONS (15)
  - Anxiety [None]
  - Nausea [None]
  - Restlessness [None]
  - Irritability [None]
  - Drug dependence [None]
  - Myalgia [None]
  - Depression [None]
  - Fatigue [None]
  - Withdrawal syndrome [None]
  - Product advertising issue [None]
  - Emotional disorder [None]
  - Insomnia [None]
  - Abdominal discomfort [None]
  - Diarrhoea [None]
  - Hyperhidrosis [None]

NARRATIVE: CASE EVENT DATE: 20250820
